FAERS Safety Report 7745034-4 (Version None)
Quarter: 2011Q3

REPORT INFORMATION
  Report Type: 
  Country: None (occurrence: None)
  Receive Date: 20110913
  Receipt Date: 20110901
  Transmission Date: 20111222
  Serious: No
  Sender: FDA-Public Use
  Company Number: US-BIOGENIDEC-2011BI034061

PATIENT
  Sex: Female

DRUGS (4)
  1. TYSABRI [Suspect]
     Route: 042
     Dates: start: 20091113, end: 20100219
  2. LIDOCAINE [Concomitant]
     Indication: PREMEDICATION
     Route: 061
  3. TYSABRI [Suspect]
     Indication: MULTIPLE SCLEROSIS
     Route: 042
     Dates: start: 20110218
  4. AVONEX [Concomitant]
     Indication: MULTIPLE SCLEROSIS
     Route: 030
     Dates: start: 20091101

REACTIONS (8)
  - DIPLOPIA [None]
  - SWELLING [None]
  - VITAMIN D DECREASED [None]
  - FATIGUE [None]
  - POOR VENOUS ACCESS [None]
  - BALANCE DISORDER [None]
  - GAIT DISTURBANCE [None]
  - PAIN [None]
